FAERS Safety Report 6759913-8 (Version None)
Quarter: 2010Q2

REPORT INFORMATION
  Report Type: 
  Country: None (occurrence: None)
  Receive Date: 20100608
  Receipt Date: 20100526
  Transmission Date: 20101027
  Serious: Yes (Hospitalization, Other)
  Sender: FDA-Public Use
  Company Number: US-ELI_LILLY_AND_COMPANY-US201003000549

PATIENT
  Sex: Female

DRUGS (2)
  1. BYETTA [Suspect]
     Indication: TYPE 2 DIABETES MELLITUS
  2. LANTUS [Concomitant]

REACTIONS (5)
  - ADENOCARCINOMA PANCREAS [None]
  - BLOOD GLUCOSE INCREASED [None]
  - HOSPITALISATION [None]
  - OFF LABEL USE [None]
  - PANCREATITIS CHRONIC [None]
